FAERS Safety Report 4284500-3 (Version None)
Quarter: 2004Q1

REPORT INFORMATION
  Report Type: 
  Country: None (occurrence: None)
  Receive Date: 20040130
  Receipt Date: 20040130
  Transmission Date: 20041129
  Serious: No
  Sender: FDA-Public Use
  Company Number: None

PATIENT
  Age: 56 Year
  Sex: Female
  Weight: 104.3273 kg

DRUGS (21)
  1. MERIDIA [Suspect]
     Indication: OBESITY
     Dosage: QD PO [2 DOSES]
     Route: 048
     Dates: start: 20040112
  2. AMITRIPTYLINE HCL [Concomitant]
  3. COMBIVENT [Concomitant]
  4. COUMADIN [Concomitant]
  5. DARVOCET-N 100 [Concomitant]
  6. DEMADEX [Concomitant]
  7. GEMFIBROZIL [Concomitant]
  8. GLUCOPHAGE [Concomitant]
  9. INSULIN GLARGIN [Concomitant]
  10. K-DUR 10 [Concomitant]
  11. KLONOPIN [Concomitant]
  12. LACTULOSE [Concomitant]
  13. LOPRESSOR [Concomitant]
  14. MEVACOR [Concomitant]
  15. NEURONTIN [Concomitant]
  16. NITROGLYCERIN [Concomitant]
  17. TRIAMCINOLONE [Concomitant]
  18. TYLENOL (CAPLET) [Concomitant]
  19. ULTRAM [Concomitant]
  20. ZAROXOLYN [Concomitant]
  21. ZOLOFT [Concomitant]

REACTIONS (1)
  - MUSCLE TWITCHING [None]
